FAERS Safety Report 6043779-8 (Version None)
Quarter: 2009Q1

REPORT INFORMATION
  Report Type: 
  Country: None (occurrence: None)
  Receive Date: 20090120
  Receipt Date: 20090114
  Transmission Date: 20090719
  Serious: Yes (Life-Threatening)
  Sender: FDA-Public Use
  Company Number: PHEH2009US00779

PATIENT
  Age: 81 Year
  Sex: Female

DRUGS (2)
  1. TEGRETOL [Suspect]
     Indication: TRIGEMINAL NEURALGIA
     Dosage: 200 MG, 1 AM, 1 PM, 1.5 HS
  2. TEGRETOL [Suspect]
     Indication: PAIN
     Dosage: UP TO FOUR PILLS PER DAY

REACTIONS (5)
  - DRUG INEFFECTIVE [None]
  - HEADACHE [None]
  - PAIN [None]
  - SUICIDAL IDEATION [None]
  - TREMOR [None]
